FAERS Safety Report 5186712-3 (Version None)
Quarter: 2006Q4

REPORT INFORMATION
  Report Type: 
  Country: None (occurrence: None)
  Receive Date: 20061211
  Receipt Date: 20061128
  Transmission Date: 20070319
  Serious: Yes (Death, Life-Threatening, Hospitalization)
  Sender: FDA-Public Use
  Company Number: THYM-11157

PATIENT
  Age: 35 Year
  Sex: Female
  Weight: 133.5 kg

DRUGS (8)
  1. THYMOGLOBULIN [Suspect]
     Indication: PROPHYLAXIS AGAINST GRAFT VERSUS HOST DISEASE
     Dosage: 0.5 MG QD IV
     Route: 042
     Dates: start: 20060806, end: 20060806
  2. THYMOGLOBULIN [Suspect]
     Indication: PROPHYLAXIS AGAINST GRAFT VERSUS HOST DISEASE
     Dosage: 2.5 MG/KG QD IV
     Route: 042
     Dates: start: 20060807, end: 20060807
  3. THYMOGLOBULIN [Suspect]
     Indication: PROPHYLAXIS AGAINST GRAFT VERSUS HOST DISEASE
     Dosage: 3 MG/KG QD IV
     Route: 042
     Dates: start: 20060808, end: 20060808
  4. FLUDARABINE [Concomitant]
  5. BUSULFAN [Concomitant]
  6. TACROLIMUS [Concomitant]
  7. METHOTREXATE [Concomitant]
  8. PREDNISONE TAB [Concomitant]

REACTIONS (5)
  - CANDIDIASIS [None]
  - HAEMODIALYSIS [None]
  - LUNG INFECTION PSEUDOMONAL [None]
  - RENAL FAILURE [None]
  - SPUTUM CULTURE POSITIVE [None]
